FAERS Safety Report 7103801-4 (Version None)
Quarter: 2010Q4

REPORT INFORMATION
  Report Type: 
  Country: None (occurrence: None)
  Receive Date: 20101115
  Receipt Date: 20101109
  Transmission Date: 20110411
  Serious: Yes (Hospitalization)
  Sender: FDA-Public Use
  Company Number: JP-PFIZER INC-JP-WYE-H17371410

PATIENT
  Age: 87 Year
  Sex: Female
  Weight: 48 kg

DRUGS (4)
  1. CELECOXIB [Suspect]
     Dosage: 200 MG, 1X/DAY
     Route: 048
     Dates: end: 20100913
  2. RHEUMATREX [Suspect]
     Indication: RHEUMATOID ARTHRITIS
     Dosage: UNK DATE: METHOTREXATE 4 MG/WEEK; STOPPED 17-AUG-2010; RESUMED 24-AUG-2010; STOPPED 07-SEP-2010
     Route: 048
  3. PREDNISOLONE [Suspect]
     Indication: RHEUMATOID ARTHRITIS
     Dosage: 5 MG, 1X/DAY
     Route: 048
     Dates: end: 20100916
  4. TAKEPRON [Concomitant]
     Route: 048

REACTIONS (7)
  - CARDIAC FAILURE [None]
  - DIARRHOEA [None]
  - GASTRIC ULCER PERFORATION [None]
  - GASTROENTERITIS [None]
  - PYREXIA [None]
  - RENAL IMPAIRMENT [None]
  - WHITE BLOOD CELL COUNT DECREASED [None]
